FAERS Safety Report 10234039 (Version 1)
Quarter: 2014Q1

REPORT INFORMATION
  Report Type: Spontaneous
  Country: US (occurrence: None)
  Receive Date: 20140306
  Receipt Date: 20140306
  Transmission Date: 20141002
  Serious: Yes (Other)
  Sender: FDA-Public Use
  Company Number: 163-21880-13013067

PATIENT
  Age: 67 Year
  Sex: Male

DRUGS (1)
  1. REVLIMID (LENALIDOMIDE) (10 MILLIGRAM, CAPSULES) [Suspect]
     Indication: PLASMA CELL MYELOMA
     Dosage: 10 MG, 21 IN 21 D
     Route: 048
     Dates: start: 20101018

REACTIONS (5)
  - Eye disorder [None]
  - Diarrhoea [None]
  - Nausea [None]
  - Dizziness [None]
  - Adverse drug reaction [None]
